FAERS Safety Report 11010229 (Version 2)
Quarter: 2015Q2

REPORT INFORMATION
  Report Type: Report from Study
  Country: RU (occurrence: RU)
  Receive Date: 20150410
  Receipt Date: 20150417
  Transmission Date: 20150821
  Serious: Yes (Life-Threatening, Hospitalization)
  Sender: FDA-Public Use
  Company Number: RU-ACTELION-A-CH2015-116012

PATIENT
  Age: 30 Year
  Sex: Male
  Weight: 54 kg

DRUGS (2)
  1. MACITENTAN [Suspect]
     Active Substance: MACITENTAN
     Indication: EISENMENGER^S SYNDROME
     Dosage: 10 MG, QD
     Route: 048
     Dates: start: 20140717, end: 20150324
  2. MACITENTAN [Suspect]
     Active Substance: MACITENTAN
     Dosage: 10 MG, QD
     Route: 048
     Dates: start: 20150406

REACTIONS (8)
  - Quadranopia [Recovered/Resolved with Sequelae]
  - Haemorrhagic cerebral infarction [Recovered/Resolved with Sequelae]
  - Vascular encephalopathy [Recovered/Resolved with Sequelae]
  - Headache [Recovered/Resolved with Sequelae]
  - Concomitant disease aggravated [Recovered/Resolved with Sequelae]
  - Embolic stroke [Recovered/Resolved with Sequelae]
  - Osteochondrosis [Unknown]
  - Cerebrovascular disorder [Recovered/Resolved with Sequelae]

NARRATIVE: CASE EVENT DATE: 20150312
